FAERS Safety Report 6760794-7 (Version None)
Quarter: 2010Q2

REPORT INFORMATION
  Report Type: 
  Country: None (occurrence: None)
  Receive Date: 20100607
  Receipt Date: 20100607
  Transmission Date: 20101027
  Serious: Yes (Life-Threatening, Hospitalization, Other)
  Sender: FDA-Public Use
  Company Number: None

PATIENT
  Age: 57 Year
  Sex: Male
  Weight: 99.7913 kg

DRUGS (2)
  1. EFFIENT [Suspect]
     Indication: CORONARY ARTERIAL STENT INSERTION
     Dosage: 1 TABLET DAILY PO
     Route: 048
     Dates: start: 20100514, end: 20100520
  2. HEPARIN [Suspect]
     Indication: CORONARY ARTERIAL STENT INSERTION
     Dosage: IV DRIP IV DRIP FOR 12 HOU IV
     Route: 042
     Dates: start: 20100521, end: 20100521

REACTIONS (6)
  - BACK INJURY [None]
  - CONTUSION [None]
  - DIZZINESS [None]
  - FALL [None]
  - INJURY [None]
  - PLATELET COUNT DECREASED [None]
